FAERS Safety Report 9095351 (Version 1)
Quarter: 2013Q1

REPORT INFORMATION
  Report Type: Spontaneous
  Country: US (occurrence: US)
  Receive Date: 20130201
  Receipt Date: 20130201
  Transmission Date: 20140127
  Serious: No
  Sender: FDA-Public Use
  Company Number: US-PFIZER INC-2013033216

PATIENT
  Age: 64 Year
  Sex: Male
  Weight: 88 kg

DRUGS (2)
  1. GABAPENTIN [Suspect]
     Indication: DIABETIC NEUROPATHY
     Dosage: 300 MG, 3X/DAY
     Dates: start: 20130123, end: 20130124
  2. FLAX SEEDS [Concomitant]
     Dosage: UNK

REACTIONS (6)
  - Anxiety [Unknown]
  - Nervousness [Unknown]
  - Feeling jittery [Unknown]
  - Pain [Unknown]
  - Idiosyncratic drug reaction [Unknown]
  - Feeling abnormal [Unknown]
